FAERS Safety Report 6189107-9 (Version None)
Quarter: 2009Q2

REPORT INFORMATION
  Report Type: 
  Country: None (occurrence: None)
  Receive Date: 20090513
  Receipt Date: 20090413
  Transmission Date: 20091009
  Serious: No
  Sender: FDA-Public Use
  Company Number: US-BAYER-200911205BCC

PATIENT
  Age: 43 Year
  Sex: Male
  Weight: 73 kg

DRUGS (3)
  1. ALEVE [Suspect]
     Indication: ROTATOR CUFF SYNDROME
     Dosage: UNIT DOSE: 440 MG
     Route: 048
     Dates: start: 20090401, end: 20090411
  2. FINASTERIDE [Concomitant]
     Indication: DRUG USE FOR UNKNOWN INDICATION
     Route: 065
  3. ONE A DAY MEN'S HEALTH [Concomitant]
     Indication: DRUG USE FOR UNKNOWN INDICATION
     Route: 065

REACTIONS (3)
  - PRURITUS [None]
  - ROTATOR CUFF SYNDROME [None]
  - URTICARIA [None]
